FAERS Safety Report 5645681-X (Version None)
Quarter: 2008Q1

REPORT INFORMATION
  Report Type: 
  Country: None (occurrence: None)
  Receive Date: 20080229
  Receipt Date: 20080221
  Transmission Date: 20080703
  Serious: Yes (Hospitalization, Other)
  Sender: FDA-Public Use
  Company Number: US-BOEHRINGER INGELHEIM GMBH, GERMANY-2007-BP-21228BP

PATIENT
  Sex: Male

DRUGS (28)
  1. MIRAPEX [Suspect]
     Indication: PARKINSON'S DISEASE
     Route: 048
     Dates: start: 20031101, end: 20051001
  2. MIRAPEX [Suspect]
     Route: 048
     Dates: start: 20060701, end: 20071001
  3. LODOSYN [Concomitant]
     Indication: PARKINSON'S DISEASE
  4. CARBIDOPA ER [Concomitant]
     Indication: PARKINSON'S DISEASE
  5. PARCOPA [Concomitant]
     Indication: PARKINSON'S DISEASE
  6. AMANTADINE HCL [Concomitant]
     Indication: PARKINSON'S DISEASE
  7. AZILECT [Concomitant]
  8. LORAZEPAM [Concomitant]
  9. MOBIC [Concomitant]
  10. ALPRAZOLAM [Concomitant]
  11. COMTAN [Concomitant]
     Dates: end: 20060901
  12. RANITIDINE [Concomitant]
  13. IBUPROFEN [Concomitant]
  14. ADVIL [Concomitant]
  15. MOTRIN [Concomitant]
  16. ADVAIR DISKUS 100/50 [Concomitant]
  17. TUMS [Concomitant]
  18. ZANTAC 150 [Concomitant]
  19. ARTHROTEC [Concomitant]
  20. SELEGILINE HCL [Concomitant]
     Dates: end: 20070101
  21. ASPIRIN [Concomitant]
  22. FLEXERIL [Concomitant]
     Indication: PARKINSON'S DISEASE
  23. AZILECT [Concomitant]
     Indication: PARKINSON'S DISEASE
  24. ZELAPAR [Concomitant]
     Indication: PARKINSON'S DISEASE
     Dates: start: 20070101
  25. PLAVIX [Concomitant]
     Dates: start: 20060101
  26. ASPIRIN [Concomitant]
     Dates: start: 20060101
  27. NEUPRO [Concomitant]
     Indication: PARKINSON'S DISEASE
     Dates: start: 20071201
  28. REQUIP [Concomitant]
     Indication: PARKINSON'S DISEASE
     Dosage: 3MG TO 11 MG DAILY
     Route: 048
     Dates: start: 20051001, end: 20060701

REACTIONS (10)
  - AMNESIA [None]
  - DEPRESSION [None]
  - ECONOMIC PROBLEM [None]
  - FALL [None]
  - GAMBLING [None]
  - MUSCULOSKELETAL STIFFNESS [None]
  - ON AND OFF PHENOMENON [None]
  - PAIN [None]
  - STOMACH DISCOMFORT [None]
  - SUICIDE ATTEMPT [None]
